FAERS Safety Report 15072625 (Version 1)
Quarter: 2018Q2

REPORT INFORMATION
  Report Type: Spontaneous
  Country: US (occurrence: US)
  Receive Date: 20180627
  Receipt Date: 20180627
  Transmission Date: 20180711
  Serious: No
  Sender: FDA-Public Use
  Company Number: US-TEVA-2018-US-912985

PATIENT

DRUGS (1)
  1. KETOROLAC TROMETHAMINE. [Suspect]
     Active Substance: KETOROLAC TROMETHAMINE
     Dosage: 15 TABLETS EVERY 30 DAYS
     Route: 065

REACTIONS (1)
  - Drug prescribing error [Unknown]
